FAERS Safety Report 4849771-0 (Version None)
Quarter: 2005Q4

REPORT INFORMATION
  Report Type: 
  Country: None (occurrence: None)
  Receive Date: 20051115
  Receipt Date: 20050802
  Transmission Date: 20060501
  Serious: No
  Sender: FDA-Public Use
  Company Number: S05-USA-03805-01

PATIENT
  Age: 82 Year
  Sex: Male

DRUGS (8)
  1. NAMENDA [Suspect]
     Indication: DEMENTIA
     Dosage: 5 MG QD PO
     Route: 048
     Dates: start: 20050721, end: 20050727
  2. NAMENDA [Suspect]
     Indication: DEMENTIA
     Dosage: 5 MG BID PO
     Route: 048
     Dates: start: 20050728
  3. SYNTHROID [Concomitant]
  4. HYDROCHLOROTHIAZIDE [Concomitant]
  5. NIFEDIPINE [Concomitant]
  6. DOXAZOSIN [Concomitant]
  7. COUMADIN [Concomitant]
  8. ARICEPT [Concomitant]

REACTIONS (1)
  - CONFUSIONAL STATE [None]
